FAERS Safety Report 6721652-7 (Version None)
Quarter: 2010Q2

REPORT INFORMATION
  Report Type: 
  Country: None (occurrence: None)
  Receive Date: 20100512
  Receipt Date: 20100507
  Transmission Date: 20101027
  Serious: Yes (Death, Hospitalization, Other)
  Sender: FDA-Public Use
  Company Number: MX-ELI_LILLY_AND_COMPANY-MX200908006444

PATIENT
  Sex: Female
  Weight: 70.2 kg

DRUGS (13)
  1. PEMETREXED [Suspect]
     Indication: NON-SMALL CELL LUNG CANCER
     Dosage: 865 MG, OTHER
     Route: 042
     Dates: start: 20090814, end: 20090828
  2. CARBOPLATIN [Suspect]
     Indication: NON-SMALL CELL LUNG CANCER
     Dosage: 400 MG, OTHER
     Route: 042
     Dates: start: 20090814, end: 20090828
  3. CIPROFLOXACIN [Concomitant]
     Indication: PROPHYLAXIS
     Dosage: 500 MG, UNKNOWN
     Route: 065
     Dates: start: 20090825
  4. ETAMSILATE [Concomitant]
     Indication: HAEMORRHAGE
     Dosage: 500 MG, UNKNOWN
     Route: 065
     Dates: start: 20090825
  5. METRONIDAZOLE [Concomitant]
     Indication: DIARRHOEA
     Dosage: 500 MG, UNKNOWN
     Route: 065
     Dates: start: 20090825, end: 20090827
  6. OXYGEN [Concomitant]
     Indication: DYSPNOEA
     Dosage: 6 LITER, UNKNOWN
     Route: 065
     Dates: start: 20090825
  7. OXYGEN [Concomitant]
     Dosage: 100 %, UNKNOWN
     Route: 065
  8. FOLIC ACID [Concomitant]
     Indication: SUPPLEMENTATION THERAPY
     Dosage: 0.4 MG, UNKNOWN
     Route: 065
     Dates: start: 20090421
  9. VITAMIN B-12 [Concomitant]
     Indication: SUPPLEMENTATION THERAPY
     Dosage: 1000 UG, UNKNOWN
     Route: 065
     Dates: start: 20090813, end: 20090813
  10. DEXAMETHASONE [Concomitant]
     Dosage: 6 MG, UNKNOWN
     Route: 065
     Dates: start: 20090813, end: 20090813
  11. DEXAMETHASONE [Concomitant]
     Dosage: 16 MG, OTHER
     Route: 042
  12. OMEPRAZOLE [Concomitant]
     Dosage: 40 MG, OTHER
     Route: 042
  13. MORPHINE [Concomitant]
     Dosage: 2 MG, OTHER
     Route: 042

REACTIONS (3)
  - ACUTE RESPIRATORY FAILURE [None]
  - LOWER GASTROINTESTINAL HAEMORRHAGE [None]
  - THROMBOCYTOPENIA [None]
